FAERS Safety Report 7108830-2 (Version None)
Quarter: 2010Q4

REPORT INFORMATION
  Report Type: 
  Country: None (occurrence: None)
  Receive Date: 20101117
  Receipt Date: 20101115
  Transmission Date: 20110411
  Serious: Yes (Hospitalization)
  Sender: FDA-Public Use
  Company Number: GXKR2009DE02321

PATIENT
  Age: 68 Year
  Sex: Male
  Weight: 93 kg

DRUGS (9)
  1. BISOPROLOL (NGX) [Suspect]
     Indication: HYPERTENSION
     Dosage: 2.5 MG, QD
     Route: 048
     Dates: end: 20080328
  2. ROXITHROMYCIN (NGX) [Suspect]
     Indication: RESPIRATORY TRACT INFECTION
     Dosage: 300 MG, QD
     Route: 048
     Dates: start: 20080325, end: 20080328
  3. DISALUNIL [Suspect]
     Indication: HYPERTENSION
     Dosage: 25 MG, QD
     Route: 048
  4. NORVASC [Suspect]
     Indication: HYPERTENSION
     Dosage: 5 MG, BID
     Route: 048
  5. ALDACTONE [Suspect]
     Indication: HYPERTENSION
     Dosage: 25 MG, QD
     Route: 048
     Dates: end: 20080328
  6. ZOCOR [Concomitant]
  7. PANTOPRAZOLE SODIUM [Concomitant]
  8. ALLOPURINOL [Concomitant]
  9. ACETYLSALICYLIC ACID SRT [Concomitant]

REACTIONS (5)
  - BRADYCARDIA [None]
  - DEHYDRATION [None]
  - HYPOTONIA [None]
  - SYNCOPE [None]
  - VOMITING [None]
